FAERS Safety Report 6410301-3 (Version None)
Quarter: 2009Q4

REPORT INFORMATION
  Report Type: 
  Country: None (occurrence: None)
  Receive Date: 20091022
  Receipt Date: 20091016
  Transmission Date: 20100525
  Serious: Yes (Other)
  Sender: FDA-Public Use
  Company Number: B0599077A

PATIENT
  Age: 73 Year
  Sex: Male

DRUGS (2)
  1. AMOXICILLIN AND CLAVULANATE POTASSIUM [Suspect]
     Indication: PNEUMONIA
     Route: 065
  2. DOXORUBICIN HCL [Concomitant]
     Indication: ANGIOSARCOMA
     Route: 065

REACTIONS (1)
  - ANGIOSARCOMA RECURRENT [None]
